FAERS Safety Report 24341619 (Version 1)
Quarter: 2024Q3

REPORT INFORMATION
  Report Type: Spontaneous
  Country: US (occurrence: US)
  Receive Date: 20240920
  Receipt Date: 20240920
  Transmission Date: 20241016
  Serious: No
  Sender: SANOFI AVENTIS
  Company Number: US-SA-2024SA270864

PATIENT
  Age: 40 Year
  Sex: Female
  Weight: 58.9 kg

DRUGS (15)
  1. DUPIXENT [Suspect]
     Active Substance: DUPILUMAB
     Indication: Illness
     Dosage: 300 MG, QOW
     Route: 058
  2. GAMUNEX [Concomitant]
     Active Substance: HUMAN IMMUNOGLOBULIN G
  3. SODIUM CHLORIDE [Concomitant]
     Active Substance: SODIUM CHLORIDE
  4. SODIUM CHLORIDE [Concomitant]
     Active Substance: SODIUM CHLORIDE
  5. LIDOCAINE [Concomitant]
     Active Substance: LIDOCAINE
  6. HEPARIN [Concomitant]
     Active Substance: HEPARIN SODIUM
  7. EPINEPHRINE [Concomitant]
     Active Substance: EPINEPHRINE
  8. DIPHENHYDRAMINE HYDROCHLORIDE [Concomitant]
     Active Substance: DIPHENHYDRAMINE HYDROCHLORIDE
  9. ACETAMINOPHEN [Concomitant]
     Active Substance: ACETAMINOPHEN
  10. IBUPROFEN [Concomitant]
     Active Substance: IBUPROFEN
  11. VITAMIN D3 [Concomitant]
     Active Substance: CHOLECALCIFEROL
  12. ADDERALL [Concomitant]
     Active Substance: AMPHETAMINE ASPARTATE\AMPHETAMINE SULFATE\DEXTROAMPHETAMINE SACCHARATE\DEXTROAMPHETAMINE SULFATE
  13. ZOFRAN [Concomitant]
     Active Substance: ONDANSETRON HYDROCHLORIDE
  14. EXCEDRIN MIGRAINE [Concomitant]
     Active Substance: ACETAMINOPHEN\ASPIRIN\CAFFEINE
  15. OXYQUINOLINE SULFATE [Concomitant]
     Active Substance: OXYQUINOLINE SULFATE

REACTIONS (3)
  - Staphylococcus test positive [Unknown]
  - Sinusitis [Unknown]
  - Headache [Unknown]

NARRATIVE: CASE EVENT DATE: 20240101
